FAERS Safety Report 21918828 (Version 1)
Quarter: 2023Q1

REPORT INFORMATION
  Report Type: Report from Study
  Country: US (occurrence: US)
  Receive Date: 20230127
  Receipt Date: 20230127
  Transmission Date: 20230418
  Serious: Yes (Other)
  Sender: FDA-Public Use
  Company Number: US-SA-SAC20230124001946

PATIENT
  Age: 70 Year
  Sex: Male

DRUGS (1)
  1. BELUMOSUDIL MESYLATE [Suspect]
     Active Substance: BELUMOSUDIL MESYLATE
     Indication: Acute graft versus host disease
     Dosage: 200 MG, Q12H
     Route: 048
     Dates: start: 20220518

REACTIONS (2)
  - Malignant melanoma [Unknown]
  - Viral infection [Unknown]
